FAERS Safety Report 9632300 (Version 1)
Quarter: 2013Q4

REPORT INFORMATION
  Report Type: Spontaneous
  Country: US (occurrence: None)
  Receive Date: 20131018
  Receipt Date: 20131018
  Transmission Date: 20140711
  Serious: Yes (Disabling)
  Sender: FDA-Public Use
  Company Number: None

PATIENT
  Sex: Female
  Weight: 42.18 kg

DRUGS (1)
  1. FORTEO [Suspect]
     Indication: OSTEOPOROSIS
     Dosage: 600MCG 24 M2 PER DAY 1/DAY SUBQ SHOT

REACTIONS (3)
  - Muscle twitching [None]
  - Heart rate irregular [None]
  - Tinnitus [None]
